FAERS Safety Report 5809619-4 (Version None)
Quarter: 2008Q3

REPORT INFORMATION
  Report Type: 
  Country: None (occurrence: None)
  Receive Date: 20080715
  Receipt Date: 20080708
  Transmission Date: 20090109
  Serious: Yes (Death)
  Sender: FDA-Public Use
  Company Number: US-ROCHE-574786

PATIENT
  Sex: Female
  Weight: 54.4 kg

DRUGS (1)
  1. CAPECITABINE [Suspect]
     Dosage: DOSE: FOUR DOSE FROMS DAILY. FREQUENCY: IN MORNING AND IN EVENING
     Route: 048

REACTIONS (1)
  - DISEASE PROGRESSION [None]
